FAERS Safety Report 7793613-0 (Version None)
Quarter: 2011Q4

REPORT INFORMATION
  Report Type: 
  Country: None (occurrence: None)
  Receive Date: 20111003
  Receipt Date: 20110929
  Transmission Date: 20120403
  Serious: Yes (Death, Hospitalization)
  Sender: FDA-Public Use
  Company Number: PHHY2011JP76949

PATIENT
  Age: 64 Year
  Sex: Female

DRUGS (4)
  1. LEUCOVORIN CALCIUM [Suspect]
     Dates: start: 20080301
  2. FLUOROURACIL [Suspect]
     Dates: start: 20080301
  3. BEVACIZUMAB [Suspect]
     Dates: start: 20080301
  4. IRINOTECAN HYDROCHLORIDE [Suspect]
     Dates: start: 20080301

REACTIONS (9)
  - RESPIRATORY FAILURE [None]
  - PYREXIA [None]
  - CREPITATIONS [None]
  - PLATELET COUNT DECREASED [None]
  - COUGH [None]
  - INTERSTITIAL LUNG DISEASE [None]
  - LEUKOPENIA [None]
  - DYSPNOEA [None]
  - NEOPLASM PROGRESSION [None]
